FAERS Safety Report 23464746 (Version 5)
Quarter: 2025Q2

REPORT INFORMATION
  Report Type: Report from Study
  Country: US (occurrence: US)
  Receive Date: 20240201
  Receipt Date: 20250527
  Transmission Date: 20250716
  Serious: Yes (Other)
  Sender: TAKEDA
  Company Number: US-TAKEDA-2024TUS007552

PATIENT
  Sex: Male

DRUGS (1)
  1. VEDOLIZUMAB [Suspect]
     Active Substance: VEDOLIZUMAB
     Indication: Product used for unknown indication

REACTIONS (7)
  - Multiple sclerosis [Unknown]
  - Fistula [Unknown]
  - Pneumonia [Unknown]
  - Anal abscess [Unknown]
  - Wound [Unknown]
  - Memory impairment [Unknown]
  - Inappropriate schedule of product administration [Unknown]
